FAERS Safety Report 5525220-4 (Version None)
Quarter: 2007Q4

REPORT INFORMATION
  Report Type: 
  Country: None (occurrence: None)
  Receive Date: 20071126
  Receipt Date: 20071116
  Transmission Date: 20080405
  Serious: Yes (Hospitalization, Other)
  Sender: FDA-Public Use
  Company Number: FR-BRISTOL-MYERS SQUIBB COMPANY-13990130

PATIENT
  Age: 67 Year
  Sex: Female

DRUGS (8)
  1. LISODREN [Suspect]
     Indication: ADRENOCORTICAL CARCINOMA
     Dosage: STOPPED ON 16-AUG-2007 AND REINTRODUCED IN OCT-2007.
     Route: 048
     Dates: start: 20070101
  2. INNOHEP [Concomitant]
  3. INEXIUM [Concomitant]
  4. CORDARONE [Concomitant]
  5. NICARDIPINE HCL [Concomitant]
  6. HYDROCORTISONE [Concomitant]
  7. EFFERALGAN CODEINE [Concomitant]
  8. SEROPRAM [Concomitant]

REACTIONS (2)
  - DEPRESSED LEVEL OF CONSCIOUSNESS [None]
  - OVERDOSE [None]
